FAERS Safety Report 6066069-6 (Version None)
Quarter: 2009Q1

REPORT INFORMATION
  Report Type: 
  Country: None (occurrence: None)
  Receive Date: 20090130
  Receipt Date: 20090121
  Transmission Date: 20090719
  Serious: Yes (Hospitalization)
  Sender: FDA-Public Use
  Company Number: 1000003695

PATIENT
  Age: 77 Year
  Sex: Male

DRUGS (9)
  1. ESCITALOPRAM [Suspect]
     Indication: DEPRESSION
     Dosage: 20 MG (20 MG, 1 IN 1 D), ORAL
     Route: 048
     Dates: start: 20081120, end: 20081129
  2. AVODART [Concomitant]
  3. KARDEGIC [Concomitant]
  4. PLAVIX [Concomitant]
  5. OMEXEL [Concomitant]
  6. CELIPROLOL [Concomitant]
  7. COVERSYL [Concomitant]
  8. CRESTOR [Concomitant]
  9. TIMOPTIC [Concomitant]

REACTIONS (3)
  - FALL [None]
  - LOSS OF CONSCIOUSNESS [None]
  - MALAISE [None]
